FAERS Safety Report 6003699-1 (Version None)
Quarter: 2008Q4

REPORT INFORMATION
  Report Type: 
  Country: None (occurrence: None)
  Receive Date: 20081212
  Receipt Date: 20081212
  Transmission Date: 20090506
  Serious: Yes (Disabling)
  Sender: FDA-Public Use
  Company Number: None

PATIENT
  Age: 50 Year
  Sex: Female
  Weight: 102.5129 kg

DRUGS (7)
  1. TAXOTERE [Suspect]
     Indication: BREAST CANCER
     Dosage: 1 MG ONCE IV BOLUS FIRST DOSE ONLY
     Route: 040
     Dates: start: 20081125, end: 20081125
  2. TAXOTERE [Suspect]
     Indication: OESTROGEN RECEPTOR ASSAY POSITIVE
     Dosage: 1 MG ONCE IV BOLUS FIRST DOSE ONLY
     Route: 040
     Dates: start: 20081125, end: 20081125
  3. DEXAMETHASONE [Concomitant]
  4. ONDANSETRON [Concomitant]
  5. FAMOTIDINE [Concomitant]
  6. DIPHENHYDRAMINE HCL [Concomitant]
  7. CYCLOPHOSPHAMIDE [Concomitant]

REACTIONS (4)
  - BACK PAIN [None]
  - CHEST DISCOMFORT [None]
  - DYSPNOEA [None]
  - FLUSHING [None]
